FAERS Safety Report 4489020-9 (Version None)
Quarter: 2004Q4

REPORT INFORMATION
  Report Type: 
  Country: None (occurrence: None)
  Receive Date: 20041026
  Receipt Date: 20041008
  Transmission Date: 20050328
  Serious: Yes (Congenital Anomaly)
  Sender: FDA-Public Use
  Company Number: AU_041008101

PATIENT
  Age: 1 Day

DRUGS (1)
  1. ZYPREXA [Suspect]
     Dates: start: 20031201

REACTIONS (2)
  - DRUG EXPOSURE DURING PREGNANCY [None]
  - POLYDACTYLY [None]
